FAERS Safety Report 7099898-0 (Version None)
Quarter: 2010Q4

REPORT INFORMATION
  Report Type: 
  Country: None (occurrence: None)
  Receive Date: 20101108
  Receipt Date: 20090924
  Transmission Date: 20110411
  Serious: Yes (Other)
  Sender: FDA-Public Use
  Company Number: DSA_41726_2009

PATIENT
  Sex: Female

DRUGS (3)
  1. ATIVAN [Suspect]
     Indication: PRODUCT USED FOR UNKNOWN INDICATION
     Dosage: (1 MG TO 4 MG PER DAY AS NECESSARY)
  2. LEXAPRO [Concomitant]
  3. WELLBUTRIN [Concomitant]

REACTIONS (3)
  - ABDOMINAL DISCOMFORT [None]
  - CRYING [None]
  - DRUG DEPENDENCE [None]
